FAERS Safety Report 5095430-1 (Version None)
Quarter: 2006Q3

REPORT INFORMATION
  Report Type: 
  Country: None (occurrence: None)
  Receive Date: 20060901
  Receipt Date: 20060822
  Transmission Date: 20061208
  Serious: Yes (Hospitalization)
  Sender: FDA-Public Use
  Company Number: BE-ROCHE-460789

PATIENT
  Age: 13 Year
  Sex: Male
  Weight: 47.1 kg

DRUGS (4)
  1. PEGASYS [Suspect]
     Indication: HEPATITIS B
     Route: 058
     Dates: start: 20060630
  2. URSOCHOL [Concomitant]
     Route: 048
     Dates: start: 20010615
  3. FOLIC ACID [Concomitant]
     Route: 048
     Dates: start: 19940615
  4. PENI-ORAL [Concomitant]
     Route: 048
     Dates: start: 20010615

REACTIONS (1)
  - VASCULAR OCCLUSION [None]
